FAERS Safety Report 15250587 (Version 1)
Quarter: 2018Q3

REPORT INFORMATION
  Report Type: Spontaneous
  Country: US (occurrence: US)
  Receive Date: 20180716
  Receipt Date: 20180716
  Transmission Date: 20181010
  Serious: Yes (Disabling, Other)
  Sender: FDA-Public Use
  Company Number: None

PATIENT
  Age: 54 Year
  Sex: Female
  Weight: 67.5 kg

DRUGS (8)
  1. FEVERFEW [Concomitant]
     Active Substance: FEVERFEW
  2. METOPROLOL TARTRATE. [Concomitant]
     Active Substance: METOPROLOL TARTRATE
  3. CYMBALTA [Concomitant]
     Active Substance: DULOXETINE HYDROCHLORIDE
  4. IMITREX ORAL AND INJ [Concomitant]
  5. ATORVASTATIN [Concomitant]
     Active Substance: ATORVASTATIN
  6. HCTZ [Concomitant]
     Active Substance: HYDROCHLOROTHIAZIDE
  7. POTASSIUM CITRATE. [Concomitant]
     Active Substance: POTASSIUM CITRATE
  8. BOTOX [Suspect]
     Active Substance: ONABOTULINUMTOXINA
     Indication: MIGRAINE
     Dosage: ?          OTHER FREQUENCY:EVERY SIX MONTHS;OTHER ROUTE:OTHER?

REACTIONS (9)
  - Photophobia [None]
  - Aphasia [None]
  - Vomiting [None]
  - Hyperacusis [None]
  - Migraine [None]
  - Dysarthria [None]
  - Loss of personal independence in daily activities [None]
  - Memory impairment [None]
  - Slow speech [None]

NARRATIVE: CASE EVENT DATE: 20170412
